FAERS Safety Report 9768924 (Version 1)
Quarter: 2013Q4

REPORT INFORMATION
  Report Type: Spontaneous
  Country: US (occurrence: None)
  Receive Date: 20131217
  Receipt Date: 20131217
  Transmission Date: 20140711
  Serious: Yes (Hospitalization)
  Sender: FDA-Public Use
  Company Number: None

PATIENT
  Age: 72 Year
  Sex: Female
  Weight: 74.84 kg

DRUGS (5)
  1. ALENDRONATE SODIUM [Suspect]
     Indication: BONE LOSS
  2. ALENDRONATE SODIUM [Suspect]
     Indication: FAMILIAL RISK FACTOR
  3. ALENDRONATE SODIUM [Suspect]
     Indication: OSTEOPOROSIS
  4. MULTIVITAMINS [Concomitant]
  5. OMEGA 3 [Concomitant]

REACTIONS (4)
  - Femur fracture [None]
  - Pain in extremity [None]
  - Walking aid user [None]
  - Walking aid user [None]
